FAERS Safety Report 21069298 (Version 2)
Quarter: 2024Q3

REPORT INFORMATION
  Report Type: Spontaneous
  Country: US (occurrence: US)
  Receive Date: 20220712
  Receipt Date: 20240722
  Transmission Date: 20241016
  Serious: No
  Sender: ASTELLAS
  Company Number: US-ASTPRD-AER-2022-002242

PATIENT
  Age: 74 Year
  Sex: Female

DRUGS (2)
  1. MYRBETRIQ [Interacting]
     Active Substance: MIRABEGRON
     Indication: Product used for unknown indication
     Route: 065
     Dates: start: 202203
  2. PROPAFENONE [Interacting]
     Active Substance: PROPAFENONE
     Indication: Palpitations
     Route: 065

REACTIONS (5)
  - Migraine [Unknown]
  - Anxiety [Unknown]
  - Nausea [Unknown]
  - Palpitations [Unknown]
  - Drug interaction [Unknown]
